FAERS Safety Report 15990860 (Version 2)
Quarter: 2019Q2

REPORT INFORMATION
  Report Type: Spontaneous
  Country: JP (occurrence: JP)
  Receive Date: 20190221
  Receipt Date: 20190411
  Transmission Date: 20190711
  Serious: Yes (Life-Threatening, Other)
  Sender: FDA-Public Use
  Company Number: JP-PFIZER INC-2019078787

PATIENT
  Age: 58 Year
  Sex: Female

DRUGS (2)
  1. METOLATE [Suspect]
     Active Substance: METHOTREXATE
     Indication: RHEUMATOID ARTHRITIS
  2. XELJANZ [Suspect]
     Active Substance: TOFACITINIB CITRATE
     Indication: RHEUMATOID ARTHRITIS
     Dosage: 5 MG, 2X/DAY
     Route: 048
     Dates: start: 20180320, end: 20190207

REACTIONS (1)
  - Lymphocyte count decreased [Not Recovered/Not Resolved]

NARRATIVE: CASE EVENT DATE: 20190108
